FAERS Safety Report 10585541 (Version 1)
Quarter: 2014Q4

REPORT INFORMATION
  Report Type: Spontaneous
  Country: CO (occurrence: None)
  Receive Date: 20141113
  Receipt Date: 20141113
  Transmission Date: 20150529
  Serious: Yes (Other)
  Sender: FDA-Public Use
  Company Number: 2014-20661

PATIENT
  Age: 84 Year
  Sex: Male

DRUGS (2)
  1. EYLEA [Suspect]
     Active Substance: AFLIBERCEPT
     Indication: MACULAR OEDEMA
     Dates: start: 20131202, end: 20131202
  2. EYLEA [Suspect]
     Active Substance: AFLIBERCEPT
     Indication: RETINAL VEIN OCCLUSION
     Dates: start: 20131202, end: 20131202

REACTIONS (2)
  - Inappropriate schedule of drug administration [None]
  - Cataract operation [None]

NARRATIVE: CASE EVENT DATE: 201408
